FAERS Safety Report 6759764-4 (Version None)
Quarter: 2010Q2

REPORT INFORMATION
  Report Type: 
  Country: None (occurrence: None)
  Receive Date: 20100608
  Receipt Date: 20100527
  Transmission Date: 20101027
  Serious: Yes (Hospitalization, Other)
  Sender: FDA-Public Use
  Company Number: US-BAYER-201022331NA

PATIENT
  Age: 29 Year
  Sex: Female

DRUGS (3)
  1. BETASERON [Suspect]
     Indication: RELAPSING-REMITTING MULTIPLE SCLEROSIS
     Dosage: TOTAL DAILY DOSE: 6 MIU
     Route: 058
     Dates: start: 20100412
  2. BETASERON [Suspect]
     Dosage: TOTAL DAILY DOSE: 8 MIU
     Route: 058
  3. SOLU-MEDROL [Concomitant]
     Route: 042

REACTIONS (7)
  - ABDOMINAL RIGIDITY [None]
  - FATIGUE [None]
  - HEADACHE [None]
  - HYPOAESTHESIA [None]
  - MUSCLE TIGHTNESS [None]
  - VISION BLURRED [None]
  - VISUAL IMPAIRMENT [None]
